FAERS Safety Report 4965118-3 (Version None)
Quarter: 2006Q2

REPORT INFORMATION
  Report Type: 
  Country: None (occurrence: None)
  Receive Date: 20060406
  Receipt Date: 20060314
  Transmission Date: 20061013
  Serious: Yes (Hospitalization)
  Sender: FDA-Public Use
  Company Number: PHEH2006US03433

PATIENT
  Age: 63 Year
  Sex: Female

DRUGS (2)
  1. TRILEPTAL [Suspect]
     Indication: MOOD SWINGS
     Dosage: 450 MG, QD
     Route: 048
     Dates: start: 20051101, end: 20060301
  2. TOPAMAX [Suspect]
     Indication: MOOD SWINGS
     Dosage: 50 MG, UNK
     Route: 048
     Dates: start: 20060301

REACTIONS (7)
  - ACUTE MYOCARDIAL INFARCTION [None]
  - AMMONIA INCREASED [None]
  - CONFUSIONAL STATE [None]
  - FATIGUE [None]
  - INFECTION [None]
  - MALAISE [None]
  - TREMOR [None]
